FAERS Safety Report 20887056 (Version 1)
Quarter: 2022Q2

REPORT INFORMATION
  Report Type: Spontaneous
  Country: US (occurrence: None)
  Receive Date: 20220528
  Receipt Date: 20220528
  Transmission Date: 20220721
  Serious: Yes (Death)
  Sender: FDA-Public Use
  Company Number: US-ROCHE-3105178

PATIENT
  Age: 63 Year
  Sex: Female
  Weight: 65.830 kg

DRUGS (1)
  1. KADCYLA [Suspect]
     Active Substance: ADO-TRASTUZUMAB EMTANSINE
     Indication: Breast cancer female
     Route: 042
     Dates: start: 20200630

REACTIONS (1)
  - Death [Fatal]

NARRATIVE: CASE EVENT DATE: 20220515
